FAERS Safety Report 23755431 (Version 2)
Quarter: 2024Q2

REPORT INFORMATION
  Report Type: Report from Study
  Country: GB (occurrence: GB)
  Receive Date: 20240418
  Receipt Date: 20240521
  Transmission Date: 20240716
  Serious: Yes (Other)
  Sender: FDA-Public Use
  Company Number: GB-SA-SAC20240416000942

PATIENT
  Age: 35 Year
  Sex: Female

DRUGS (1)
  1. DUPILUMAB [Suspect]
     Active Substance: DUPILUMAB
     Indication: Dermatitis atopic
     Dosage: UNK
     Route: 058
     Dates: start: 20240222

REACTIONS (2)
  - Syncope [Unknown]
  - Feeling hot [Unknown]

NARRATIVE: CASE EVENT DATE: 20240415
